FAERS Safety Report 6643109-4 (Version None)
Quarter: 2010Q1

REPORT INFORMATION
  Report Type: 
  Country: None (occurrence: None)
  Receive Date: 20100319
  Receipt Date: 20100309
  Transmission Date: 20100710
  Serious: Yes (Hospitalization)
  Sender: FDA-Public Use
  Company Number: CA-ABBOTT-10P-028-0619877-00

PATIENT
  Sex: Female
  Weight: 99.88 kg

DRUGS (9)
  1. HUMIRA [Suspect]
     Indication: RHEUMATOID ARTHRITIS
     Route: 058
     Dates: start: 20090310
  2. CORTISONE [Suspect]
     Indication: JOINT SWELLING
  3. CORTISONE [Suspect]
     Indication: ARTHRALGIA
  4. LIPITOR [Concomitant]
     Indication: DRUG USE FOR UNKNOWN INDICATION
  5. NOVO-CLONIDINE [Concomitant]
     Indication: DRUG USE FOR UNKNOWN INDICATION
  6. PARIET [Concomitant]
     Indication: DRUG USE FOR UNKNOWN INDICATION
  7. PLAVIX [Concomitant]
     Indication: DRUG USE FOR UNKNOWN INDICATION
  8. COVERSYL [Concomitant]
     Indication: DRUG USE FOR UNKNOWN INDICATION
  9. NOVAZINE [Concomitant]
     Indication: DRUG USE FOR UNKNOWN INDICATION

REACTIONS (6)
  - ARTHRALGIA [None]
  - DRUG INEFFECTIVE [None]
  - GENERALISED OEDEMA [None]
  - JOINT SWELLING [None]
  - PAIN [None]
  - WEIGHT INCREASED [None]
